FAERS Safety Report 23623673 (Version 1)
Quarter: 2024Q1

REPORT INFORMATION
  Report Type: Spontaneous
  Country: DE (occurrence: DE)
  Receive Date: 20240312
  Receipt Date: 20240312
  Transmission Date: 20240409
  Serious: Yes (Other)
  Sender: FDA-Public Use
  Company Number: DE-BAXTER-2024BAX013193

PATIENT
  Age: 4 Month
  Sex: Female

DRUGS (11)
  1. CYCLOPHOSPHAMIDE [Suspect]
     Active Substance: CYCLOPHOSPHAMIDE
     Indication: Pineal neoplasm
     Dosage: TANDEM-HIGH-DOSE-CHEMOTHERAPY, 2 HDCT (STARTS ON DAY +28 AFTER FIRST ASCT), 1.5 G/M2 ON DAY -4, -3,
     Route: 042
  2. METHOTREXATE [Suspect]
     Active Substance: METHOTREXATE
     Indication: Pineal neoplasm
     Dosage: TANDEM-HIGH-DOSE-CHEMOTHERAPY, 2 HDCT (STARTS ON DAY +28 AFTER FIRST ASCT), 2 MG ON DAY -4, -3, -2,
  3. THIOTEPA [Suspect]
     Active Substance: THIOTEPA
     Indication: Pineal neoplasm
     Dosage: TANDEM-HIGH-DOSE-CHEMOTHERAPY, 2 HDCT (STARTS ON DAY +28 AFTER FIRST ASCT), 300 MG/M2 ON DAY -4, -3,
     Route: 042
  4. TROFOSFAMIDE [Suspect]
     Active Substance: TROFOSFAMIDE
     Indication: Pineal neoplasm
     Dosage: 6 CYCLES, ORAL MAINTENANCE THERAPY UNTIL PATIENT REACHED THE AGE OF 18 MONTHS
     Route: 048
  5. CARBOPLATIN;ETOPOSIDE [Concomitant]
     Dosage: 3 CYCLES CARBO/ETO-96 H-CHEMOTHERAPY, CARBO 800 MG/M2 AND ETO 400 MG/M2 CONTINUOUS INFUSION DURING 9
     Route: 042
  6. CARBOPLATIN;ETOPOSIDE [Concomitant]
     Indication: Pineal neoplasm
     Dosage: TANDEM-HIGH-DOSE-CHEMOTHERAPY, 1 HDCT, CARBO 2 G/M2 AND ETO 1G/M2 AS CONTINUOUS INFUSION DURING 96 H
     Route: 042
  7. ETOPOSIDE [Concomitant]
     Active Substance: ETOPOSIDE
     Indication: Pineal neoplasm
     Dosage: 6 CYCLES, ORAL MAINTENANCE THERAPY UNTIL PATIENT REACHED THE AGE OF 18 MONTHS
     Route: 048
  8. ETOPOSIDE [Concomitant]
     Active Substance: ETOPOSIDE
     Dosage: UNK
  9. METHOTREXATE [Concomitant]
     Active Substance: METHOTREXATE
     Dosage: 3 CYCLES CARBO/ETO-96 H-CHEMOTHERAPY, 2MG MTX ON DAY 1,2,3, 4 (STARTS EVERY 30 DAYS)
  10. METHOTREXATE [Concomitant]
     Active Substance: METHOTREXATE
     Indication: Pineal neoplasm
     Dosage: TANDEM-HIGH-DOSE-CHEMOTHERAPY, 1HDCT, 2 MG ON DAY -8, -7, -6, -5
  11. VINCRISTINE [Concomitant]
     Active Substance: VINCRISTINE
     Indication: Pineal neoplasm
     Dosage: WEAKLY BASIS
     Route: 042

REACTIONS (1)
  - Venoocclusive liver disease [Recovered/Resolved]
